FAERS Safety Report 4793626-7 (Version None)
Quarter: 2005Q4

REPORT INFORMATION
  Report Type: 
  Country: None (occurrence: None)
  Receive Date: 20051011
  Receipt Date: 20051003
  Transmission Date: 20060501
  Serious: Yes (Hospitalization)
  Sender: FDA-Public Use
  Company Number: US-BOEHRINGER INGELHEIM PHARMACEUTICALS, INC.-2005-BP-17484BP

PATIENT
  Sex: Male

DRUGS (8)
  1. FLOMAX [Suspect]
     Indication: BENIGN PROSTATIC HYPERPLASIA
     Route: 048
     Dates: start: 20050701, end: 20050901
  2. LANTUS [Concomitant]
     Route: 058
  3. NOVALOG INSULIN [Concomitant]
     Route: 058
  4. LISINOPRIL [Concomitant]
     Route: 048
  5. ATENOLOL [Concomitant]
     Route: 048
  6. DILANTIN [Concomitant]
     Route: 048
  7. ZOLOFT [Concomitant]
     Route: 048
  8. PROTONIX [Concomitant]
     Route: 048

REACTIONS (4)
  - CHEST PAIN [None]
  - MIGRAINE [None]
  - VISION BLURRED [None]
  - VITREOUS HAEMORRHAGE [None]
